FAERS Safety Report 13206476 (Version 1)
Quarter: 2017Q1

REPORT INFORMATION
  Report Type: Spontaneous
  Country: JP (occurrence: JP)
  Receive Date: 20170208
  Receipt Date: 20170208
  Transmission Date: 20170428
  Serious: Yes (Death, Hospitalization, Disabling, Other)
  Sender: FDA-Public Use
  Company Number: JP-PFIZER INC-2016553466

PATIENT
  Age: 67 Year
  Sex: Male
  Weight: 50 kg

DRUGS (22)
  1. CAMPTO [Suspect]
     Active Substance: IRINOTECAN
     Indication: PANCREATIC CARCINOMA
     Dosage: 229.2 MG, 1X/DAY
     Route: 041
     Dates: start: 20160629, end: 20160629
  2. LEVOFOLINATE [Concomitant]
     Active Substance: LEVOLEUCOVORIN CALCIUM
     Dosage: 305.6 MG
     Route: 041
     Dates: start: 20160629, end: 20160713
  3. DEXART [Concomitant]
     Active Substance: DEXAMETHASONE SODIUM PHOSPHATE
     Dosage: UNK
     Route: 041
     Dates: start: 20160629, end: 20160713
  4. LOXOPROFEN [Concomitant]
     Active Substance: LOXOPROFEN
     Dosage: UNK
     Dates: start: 20160628
  5. HEPARIN SODIUM. [Concomitant]
     Active Substance: HEPARIN SODIUM
     Dosage: UNK
     Dates: start: 20160726, end: 20160731
  6. ELPLAT [Suspect]
     Active Substance: OXALIPLATIN
     Indication: PANCREATIC CARCINOMA
     Dosage: 129.9 MG, 1X/DAY
     Route: 041
     Dates: start: 20160629, end: 20160629
  7. ZOSYN [Concomitant]
     Active Substance: PIPERACILLIN SODIUM\TAZOBACTAM SODIUM
     Dosage: UNK
     Dates: start: 20160802, end: 20160809
  8. 5-FU [Suspect]
     Active Substance: FLUOROURACIL
     Indication: PANCREATIC CARCINOMA
     Dosage: 3667.2 MG, ONCE IN 2 DAYS
     Route: 041
     Dates: start: 20160629, end: 20160629
  9. 5-FU [Suspect]
     Active Substance: FLUOROURACIL
     Dosage: 3667.2 MG, ONCE IN 2 DAYS, 2ND CYCLE
     Route: 041
     Dates: start: 20160713, end: 20160713
  10. LANSOPRAZOLE. [Concomitant]
     Active Substance: LANSOPRAZOLE
     Dosage: UNK
     Route: 048
     Dates: start: 20160628
  11. AMLODIPINE [Concomitant]
     Active Substance: AMLODIPINE BESYLATE
     Dosage: UNK
     Dates: start: 20160629
  12. PREDONINE [Concomitant]
     Active Substance: PREDNISOLONE
     Dosage: UNK
     Dates: start: 20160818, end: 20160822
  13. NOVAMIN [Concomitant]
     Active Substance: PROCHLORPERAZINE MALEATE
     Dosage: UNK
     Dates: start: 20160712
  14. TENELIA [Concomitant]
     Active Substance: TENELIGLIPTIN
     Dosage: UNK
     Dates: start: 20160712
  15. CAMPTO [Suspect]
     Active Substance: IRINOTECAN
     Dosage: 229.2 MG, 1X/DAY, 2ND CYCLE
     Route: 041
     Dates: start: 20160713, end: 20160713
  16. ALOXI [Concomitant]
     Active Substance: PALONOSETRON HYDROCHLORIDE
     Dosage: UNK
     Dates: start: 20160629, end: 20160713
  17. TRAMCET [Concomitant]
     Active Substance: ACETAMINOPHEN\TRAMADOL
     Dosage: UNK
     Dates: start: 20160628
  18. SOLU-MEDROL [Concomitant]
     Active Substance: METHYLPREDNISOLONE SODIUM SUCCINATE
     Dosage: UNK
     Dates: start: 20160802, end: 20160804
  19. ELPLAT [Suspect]
     Active Substance: OXALIPLATIN
     Dosage: 129.9 MG, 1X/DAY, 2ND CYCLE
     Route: 041
     Dates: start: 20160713, end: 20160713
  20. BIO-THREE [Concomitant]
     Active Substance: HERBALS
     Dosage: UNK
     Route: 048
     Dates: start: 20160628
  21. OXYCODONE [Concomitant]
     Active Substance: OXYCODONE
     Dosage: UNK
     Dates: start: 20160712
  22. PREDONINE [Concomitant]
     Active Substance: PREDNISOLONE
     Dosage: UNK
     Dates: start: 20160805, end: 20160817

REACTIONS (5)
  - Pulmonary artery thrombosis [Fatal]
  - Haemoglobin decreased [Unknown]
  - Interstitial lung disease [Fatal]
  - Delirium [Unknown]
  - Hypophagia [Unknown]

NARRATIVE: CASE EVENT DATE: 20160726
